FAERS Safety Report 12939111 (Version 1)
Quarter: 2016Q4

REPORT INFORMATION
  Report Type: Spontaneous
  Country: DE (occurrence: DE)
  Receive Date: 20161115
  Receipt Date: 20161115
  Transmission Date: 20170207
  Serious: Yes (Other)
  Sender: FDA-Public Use
  Company Number: DE-ROCHE-1839861

PATIENT
  Sex: Male
  Weight: 94 kg

DRUGS (1)
  1. ZELBORAF [Suspect]
     Active Substance: VEMURAFENIB
     Indication: MALIGNANT MELANOMA
     Route: 065

REACTIONS (4)
  - Liver function test increased [Unknown]
  - Hepatic failure [Recovered/Resolved]
  - Anaemia [Recovered/Resolved]
  - Renal failure [Recovered/Resolved]
